FAERS Safety Report 21821868 (Version 3)
Quarter: 2023Q1

REPORT INFORMATION
  Report Type: Report from Study
  Country: GB (occurrence: GB)
  Receive Date: 20230105
  Receipt Date: 20230224
  Transmission Date: 20230417
  Serious: Yes (Other)
  Sender: FDA-Public Use
  Company Number: GB-SAMSUNG BIOEPIS-SB-2023-00216

PATIENT
  Sex: Female

DRUGS (1)
  1. IMRALDI [Suspect]
     Active Substance: ADALIMUMAB
     Indication: Polyarthritis
     Dosage: STRENGTH: 40 MILLIGRAM/ 0.8 MILLILITER;
     Route: 058
     Dates: start: 20221021

REACTIONS (2)
  - Cellulitis [Recovering/Resolving]
  - Product use in unapproved indication [Unknown]
